FAERS Safety Report 7156817-6 (Version None)
Quarter: 2010Q4

REPORT INFORMATION
  Report Type: 
  Country: None (occurrence: None)
  Receive Date: 20101214
  Receipt Date: 20101207
  Transmission Date: 20110411
  Serious: Yes (Other)
  Sender: FDA-Public Use
  Company Number: JP-PFIZER INC-2010166386

PATIENT
  Age: 80 Year
  Sex: Female

DRUGS (5)
  1. ALDACTONE [Suspect]
     Route: 048
  2. GASTER [Suspect]
     Dosage: UNK
     Dates: end: 20101206
  3. LASIX [Suspect]
  4. GLAKAY [Concomitant]
  5. LIVACT [Concomitant]

REACTIONS (1)
  - PLATELET COUNT DECREASED [None]
